FAERS Safety Report 5191341-1 (Version None)
Quarter: 2006Q4

REPORT INFORMATION
  Report Type: 
  Country: None (occurrence: None)
  Receive Date: 20061219
  Receipt Date: 20061219
  Transmission Date: 20070319
  Serious: Yes (Other)
  Sender: FDA-Public Use
  Company Number: None

PATIENT
  Age: 12 Year
  Sex: Male
  Weight: 51.2565 kg

DRUGS (4)
  1. ZOLOFT [Suspect]
     Indication: AUTISM SPECTRUM DISORDER
     Dosage: 1/2 OF 25MGS TAB PO
     Route: 048
  2. ZOLOFT [Suspect]
     Indication: DEPRESSION
     Dosage: 1/2 OF 25MGS TAB PO
     Route: 048
  3. ZOLOFT [Suspect]
     Indication: OBSESSIVE-COMPULSIVE DISORDER
     Dosage: 1/2 OF 25MGS TAB PO
     Route: 048
  4. ZOLOFT [Suspect]
     Indication: SOCIAL PHOBIA
     Dosage: 1/2 OF 25MGS TAB PO
     Route: 048

REACTIONS (4)
  - ASTHMA [None]
  - CONDITION AGGRAVATED [None]
  - PHARMACEUTICAL PRODUCT COMPLAINT [None]
  - SWELLING FACE [None]
